FAERS Safety Report 4296424-6 (Version None)
Quarter: 2004Q1

REPORT INFORMATION
  Report Type: 
  Country: None (occurrence: None)
  Receive Date: 20040212
  Receipt Date: 20040202
  Transmission Date: 20041129
  Serious: Yes (Life-Threatening)
  Sender: FDA-Public Use
  Company Number: F01200400202

PATIENT
  Age: 78 Year
  Sex: Female

DRUGS (6)
  1. (FONDAPARINUX SODIUM) - SOLUTION - UNIT DOSE:  UNKNOWN [Suspect]
     Indication: BONE OPERATION
     Dosage: 2.5 MG SUBCUTANEOUS
     Route: 058
     Dates: start: 20040122, end: 20040129
  2. RAMIPRIL [Concomitant]
  3. DOXAZOSIN MESYLATE [Concomitant]
  4. VERAPAMIL [Concomitant]
  5. EUGLUCON (GLIBENCLAMIDE) [Concomitant]
  6. PARACETAMOL [Concomitant]

REACTIONS (3)
  - DUODENAL ULCER HAEMORRHAGE [None]
  - SMALL INTESTINAL HAEMORRHAGE [None]
  - THROMBOSIS [None]
